FAERS Safety Report 6607408-4 (Version None)
Quarter: 2010Q1

REPORT INFORMATION
  Report Type: 
  Country: None (occurrence: None)
  Receive Date: 20100301
  Receipt Date: 20100215
  Transmission Date: 20100710
  Serious: Yes (Death)
  Sender: FDA-Public Use
  Company Number: US-JNJFOC-20081006996

PATIENT
  Sex: Male
  Weight: 104.78 kg

DRUGS (3)
  1. FENTANYL CITRATE [Suspect]
     Indication: PAIN
     Route: 062
  2. PHENERGAN HCL [Concomitant]
  3. OXYCODONE [Concomitant]

REACTIONS (2)
  - INTENTIONAL DRUG MISUSE [None]
  - NARCOTIC INTOXICATION [None]
